FAERS Safety Report 7139252-6 (Version None)
Quarter: 2010Q4

REPORT INFORMATION
  Report Type: 
  Country: None (occurrence: None)
  Receive Date: 20101202
  Receipt Date: 20101202
  Transmission Date: 20110411
  Serious: Yes (Hospitalization)
  Sender: FDA-Public Use
  Company Number: None

PATIENT
  Age: 25 Year
  Sex: Female
  Weight: 79 kg

DRUGS (2)
  1. BUPIVACAINE HCL [Suspect]
     Indication: NERVE BLOCK
     Dosage: ONCE
     Dates: start: 20101118, end: 20101118
  2. BUPIVACAINE HCL [Suspect]
     Indication: PREOPERATIVE CARE
     Dosage: ONCE
     Dates: start: 20101118, end: 20101118

REACTIONS (5)
  - CARDIAC ARREST [None]
  - GRAND MAL CONVULSION [None]
  - HYPOTENSION [None]
  - SHOCK [None]
  - VENTRICULAR FIBRILLATION [None]
